FAERS Safety Report 19284749 (Version 1)
Quarter: 2021Q2

REPORT INFORMATION
  Report Type: Spontaneous
  Country: IT (occurrence: IT)
  Receive Date: 20210521
  Receipt Date: 20210521
  Transmission Date: 20210717
  Serious: Yes (Hospitalization, Other)
  Sender: FDA-Public Use
  Company Number: IT-SA-2021SA159945

PATIENT
  Age: 85 Year
  Sex: Male

DRUGS (10)
  1. LYRICA [Concomitant]
     Active Substance: PREGABALIN
  2. RAMIPRIL ACTAVIS [Concomitant]
     Active Substance: RAMIPRIL
  3. AMLODIPINA ALMUS [Concomitant]
     Active Substance: AMLODIPINE BESYLATE
  4. TAPAZOLE [Concomitant]
     Active Substance: METHIMAZOLE
  5. CLOPIDOGREL BISULFATE. [Suspect]
     Active Substance: CLOPIDOGREL BISULFATE
     Indication: CORONARY ARTERY DISEASE
     Dosage: 1 DF
     Route: 048
  6. ACETYLSALICYLIC ACID [Suspect]
     Active Substance: ASPIRIN
     Indication: CORONARY ARTERY DISEASE
     Dosage: 1 DF
     Route: 048
  7. DABIGATRAN ETEXILATE [Interacting]
     Active Substance: DABIGATRAN ETEXILATE
     Indication: ATRIAL FIBRILLATION
     Dosage: 1 DF
     Route: 048
  8. METFORMIN [Concomitant]
     Active Substance: METFORMIN HYDROCHLORIDE
  9. PANTOPRAZOLO [Concomitant]
     Active Substance: PANTOPRAZOLE SODIUM
  10. ZOLOFT [Concomitant]
     Active Substance: SERTRALINE HYDROCHLORIDE

REACTIONS (5)
  - Drug interaction [Unknown]
  - Hemiplegia [Recovering/Resolving]
  - Aphasia [Recovering/Resolving]
  - Cerebral haemorrhage [Recovering/Resolving]
  - Hypertension [Recovering/Resolving]

NARRATIVE: CASE EVENT DATE: 20210323
